FAERS Safety Report 21560992 (Version 2)
Quarter: 2022Q4

REPORT INFORMATION
  Report Type: Spontaneous
  Country: US (occurrence: US)
  Receive Date: 20221107
  Receipt Date: 20221125
  Transmission Date: 20230113
  Serious: Yes (Other)
  Sender: FDA-Public Use
  Company Number: US-TEVA-2022-US-2003306

PATIENT
  Sex: Male

DRUGS (9)
  1. COLCHICINE [Suspect]
     Active Substance: COLCHICINE
     Indication: X-linked lymphoproliferative syndrome
     Route: 065
  2. MESALAMINE [Suspect]
     Active Substance: MESALAMINE
     Indication: X-linked lymphoproliferative syndrome
     Route: 065
  3. ANAKINRA [Suspect]
     Active Substance: ANAKINRA
     Indication: X-linked lymphoproliferative syndrome
     Route: 065
  4. CANAKINUMAB [Suspect]
     Active Substance: CANAKINUMAB
     Indication: X-linked lymphoproliferative syndrome
     Route: 065
  5. TOCILIZUMAB [Suspect]
     Active Substance: TOCILIZUMAB
     Indication: X-linked lymphoproliferative syndrome
     Route: 065
  6. ETANERCEPT [Suspect]
     Active Substance: ETANERCEPT
     Indication: X-linked lymphoproliferative syndrome
     Route: 065
  7. INFLIXIMAB [Suspect]
     Active Substance: INFLIXIMAB
     Indication: X-linked lymphoproliferative syndrome
     Route: 065
  8. RITUXIMAB [Suspect]
     Active Substance: RITUXIMAB
     Indication: X-linked lymphoproliferative syndrome
     Route: 065
  9. VEDOLIZUMAB [Suspect]
     Active Substance: VEDOLIZUMAB
     Indication: X-linked lymphoproliferative syndrome
     Route: 065

REACTIONS (3)
  - Drug ineffective [Unknown]
  - Status epilepticus [Unknown]
  - Toxicity to various agents [Unknown]
